FAERS Safety Report 6911430-8 (Version None)
Quarter: 2010Q3

REPORT INFORMATION
  Report Type: 
  Country: None (occurrence: None)
  Receive Date: 20100806
  Receipt Date: 20100727
  Transmission Date: 20110219
  Serious: Yes (Hospitalization)
  Sender: FDA-Public Use
  Company Number: HK-JNJFOC-20100708746

PATIENT
  Sex: Female

DRUGS (9)
  1. IBUPROFEN TABLETS [Suspect]
     Indication: OSTEOARTHRITIS
     Route: 048
  2. IBUPROFEN TABLETS [Suspect]
     Indication: RHEUMATOID ARTHRITIS
     Route: 048
  3. NEXIUM [Concomitant]
  4. FERROUS SULFATE TAB [Concomitant]
  5. FOLIC ACID [Concomitant]
  6. LOSARTAN POTASSIUM [Concomitant]
  7. METHOTREXATE [Concomitant]
  8. NIFEDIPINE [Concomitant]
  9. SIMVASTATIN [Concomitant]

REACTIONS (1)
  - COLONIC POLYP [None]
